FAERS Safety Report 5093085-3 (Version None)
Quarter: 2006Q3

REPORT INFORMATION
  Report Type: 
  Country: None (occurrence: None)
  Receive Date: 20060830
  Receipt Date: 20060127
  Transmission Date: 20061208
  Serious: Yes (Death, Life-Threatening, Hospitalization, Other)
  Sender: FDA-Public Use
  Company Number: US-AVENTIS-200610831GDDC

PATIENT
  Age: 72 Year
  Sex: Male
  Weight: 62.28 kg

DRUGS (6)
  1. GLIMEPIRIDE [Suspect]
     Indication: DIABETES MELLITUS
     Dates: start: 20030411
  2. NOVOLOG MIX 70/30 [Suspect]
     Indication: DIABETES MELLITUS
     Dosage: DOSE: 17 UNITS EVERY MORNING WITH MEAL
     Route: 058
     Dates: start: 20050711
  3. NOVOLOG MIX 70/30 [Suspect]
     Dosage: DOSE: 8 UNITS EVERY NIGHT WITH MEAL
     Route: 058
     Dates: start: 20050711
  4. ASPIRIN [Concomitant]
  5. LISINOPRIL [Concomitant]
  6. SAW PALMETTO [Concomitant]

REACTIONS (6)
  - DYSPHAGIA [None]
  - HEAD INJURY [None]
  - INTESTINAL OBSTRUCTION [None]
  - PNEUMONIA [None]
  - ROAD TRAFFIC ACCIDENT [None]
  - TRAUMATIC BRAIN INJURY [None]
